FAERS Safety Report 6282541-8 (Version None)
Quarter: 2009Q3

REPORT INFORMATION
  Report Type: 
  Country: None (occurrence: None)
  Receive Date: 20090724
  Receipt Date: 20090714
  Transmission Date: 20100115
  Serious: Yes (Death)
  Sender: FDA-Public Use
  Company Number: JP-WATSON-2009-02249

PATIENT
  Sex: Male
  Weight: 69 kg

DRUGS (4)
  1. RAPAFLO [Suspect]
     Indication: BLADDER OBSTRUCTION
     Dosage: 8 MG, DAILY
     Route: 048
     Dates: start: 20080813, end: 20081113
  2. URINORM [Suspect]
     Indication: HYPERURICAEMIA
     Dosage: 2 DF, DAILY
     Route: 048
     Dates: start: 20081001
  3. INFLUENZA HA VACCINE [Concomitant]
     Indication: NASOPHARYNGITIS
     Dosage: UNK
     Route: 058
     Dates: start: 20081113
  4. FLIVAS [Concomitant]
     Indication: DYSURIA
     Dosage: 1 DF, DAILY
     Route: 048
     Dates: start: 20081114

REACTIONS (7)
  - DECREASED APPETITE [None]
  - HEPATIC ATROPHY [None]
  - HEPATITIS FULMINANT [None]
  - JAUNDICE [None]
  - MALAISE [None]
  - PYREXIA [None]
  - SOMNOLENCE [None]
